FAERS Safety Report 5475577-8 (Version None)
Quarter: 2007Q4

REPORT INFORMATION
  Report Type: 
  Country: None (occurrence: None)
  Receive Date: 20071003
  Receipt Date: 20061026
  Transmission Date: 20080405
  Serious: No
  Sender: FDA-Public Use
  Company Number: US-KINGPHARMUSA00001-K200601342

PATIENT

DRUGS (1)
  1. SONATA [Suspect]
     Indication: POOR QUALITY SLEEP
     Dosage: 20 MG, PRN QWEEK
     Route: 048
     Dates: start: 20060801, end: 20061001

REACTIONS (2)
  - AMNESIA [None]
  - DRUG EFFECT DECREASED [None]
